FAERS Safety Report 23851930 (Version 1)
Quarter: 2024Q2

REPORT INFORMATION
  Report Type: Spontaneous
  Country: US (occurrence: US)
  Receive Date: 20240514
  Receipt Date: 20240514
  Transmission Date: 20240716
  Serious: Yes (Other)
  Sender: FDA-Public Use
  Company Number: US-009507513-2405USA002495

PATIENT
  Age: 50 Year
  Sex: Male

DRUGS (3)
  1. PIFELTRO [Suspect]
     Active Substance: DORAVIRINE
     Indication: Antiretroviral therapy
     Dosage: UNK
     Route: 048
  2. AMPHOTERICIN B [Concomitant]
     Active Substance: AMPHOTERICIN B
     Indication: Disseminated coccidioidomycosis
     Dosage: 5 MILLIGRAM/KILOGRAM
  3. BICTEGRAVIR\EMTRICITABINE\TENOFOVIR ALAFENAMIDE [Concomitant]
     Active Substance: BICTEGRAVIR\EMTRICITABINE\TENOFOVIR ALAFENAMIDE
     Indication: Antiretroviral therapy
     Dosage: UNK

REACTIONS (1)
  - Immune reconstitution inflammatory syndrome [Recovered/Resolved]
